FAERS Safety Report 24913829 (Version 1)
Quarter: 2025Q1

REPORT INFORMATION
  Report Type: Spontaneous
  Country: IT (occurrence: IT)
  Receive Date: 20250202
  Receipt Date: 20250202
  Transmission Date: 20250409
  Serious: Yes (Hospitalization, Other)
  Sender: DR REDDYS
  Company Number: IT-GERMAN-ITA/2025/01/001527

PATIENT
  Age: 43 Year
  Sex: Female

DRUGS (4)
  1. DAPTOMYCIN [Suspect]
     Active Substance: DAPTOMYCIN
     Indication: Gas gangrene
     Dates: start: 20190603, end: 20190623
  2. CEFTAROLINE [Concomitant]
     Active Substance: CEFTAROLINE
     Indication: Gas gangrene
     Dates: start: 20190603
  3. TIGECYCLINE [Concomitant]
     Active Substance: TIGECYCLINE
     Indication: Acinetobacter infection
  4. MEROPENEM [Concomitant]
     Active Substance: MEROPENEM
     Indication: Antibiotic therapy

REACTIONS (1)
  - Eosinophilic pneumonia [Recovered/Resolved]
